FAERS Safety Report 22347422 (Version 2)
Quarter: 2023Q2

REPORT INFORMATION
  Report Type: Report from Study
  Country: US (occurrence: US)
  Receive Date: 20230521
  Receipt Date: 20230607
  Transmission Date: 20230721
  Serious: Yes (Hospitalization, Other)
  Sender: FDA-Public Use
  Company Number: US-ABBVIE-4771081

PATIENT
  Sex: Male

DRUGS (1)
  1. SKYRIZI [Suspect]
     Active Substance: RISANKIZUMAB-RZAA
     Indication: Psoriasis
     Dosage: FIRST ADMIN DATE : 25 APR 2023?WEEK 0, WEEK 4, THEN EVERY 12 WEEKS THEREAFTER.
     Route: 058

REACTIONS (4)
  - Rehabilitation therapy [Unknown]
  - Rash pruritic [Recovering/Resolving]
  - Oedema [Not Recovered/Not Resolved]
  - Urticaria [Unknown]

NARRATIVE: CASE EVENT DATE: 20230101
